FAERS Safety Report 7620525-5 (Version None)
Quarter: 2011Q3

REPORT INFORMATION
  Report Type: 
  Country: None (occurrence: None)
  Receive Date: 20110719
  Receipt Date: 20110707
  Transmission Date: 20111222
  Serious: Yes (Other)
  Sender: FDA-Public Use
  Company Number: US-ROCHE-731202

PATIENT
  Sex: Male
  Weight: 68.9 kg

DRUGS (1)
  1. ACCUTANE [Suspect]
     Dosage: DURATION: ABOUT 6 TO 9 MONTHS
     Route: 065
     Dates: start: 19930901

REACTIONS (5)
  - COLITIS ULCERATIVE [None]
  - INFLAMMATORY BOWEL DISEASE [None]
  - GASTROINTESTINAL INJURY [None]
  - IRRITABLE BOWEL SYNDROME [None]
  - POLYP [None]
